FAERS Safety Report 7338408-7 (Version None)
Quarter: 2011Q1

REPORT INFORMATION
  Report Type: 
  Country: None (occurrence: None)
  Receive Date: 20110308
  Receipt Date: 20110228
  Transmission Date: 20110831
  Serious: Yes (Other)
  Sender: FDA-Public Use
  Company Number: US-BAYER-2011-018674

PATIENT
  Sex: Male

DRUGS (1)
  1. LEVITRA [Suspect]
     Dosage: 10 MG, QD
     Route: 048
     Dates: start: 20110101, end: 20110102

REACTIONS (2)
  - ROAD TRAFFIC ACCIDENT [None]
  - BLINDNESS [None]
